FAERS Safety Report 4871590-X (Version None)
Quarter: 2005Q4

REPORT INFORMATION
  Report Type: 
  Country: None (occurrence: None)
  Receive Date: 20051230
  Receipt Date: 20051226
  Transmission Date: 20060501
  Serious: Yes (Hospitalization)
  Sender: FDA-Public Use
  Company Number: 2005-12-1310

PATIENT
  Sex: Male
  Weight: 67 kg

DRUGS (4)
  1. INTRON A [Suspect]
     Indication: RENAL CELL CARCINOMA STAGE UNSPECIFIED
     Dosage: 3 MIU INTRAMUSCULAR
     Route: 030
     Dates: start: 20051024, end: 20051027
  2. WARFARIN SODIUM [Concomitant]
  3. BUFFERIN [Concomitant]
  4. TAGAMET [Concomitant]

REACTIONS (2)
  - PAIN IN EXTREMITY [None]
  - VITH NERVE DISORDER [None]
